FAERS Safety Report 12773527 (Version 2)
Quarter: 2016Q4

REPORT INFORMATION
  Report Type: Spontaneous
  Country: JP (occurrence: JP)
  Receive Date: 20160923
  Receipt Date: 20161025
  Transmission Date: 20170207
  Serious: Yes (Other)
  Sender: FDA-Public Use
  Company Number: JP-ROCHE-1833439

PATIENT
  Age: 71 Year
  Sex: Female

DRUGS (6)
  1. VISUDYNE [Suspect]
     Active Substance: VERTEPORFIN
     Indication: AGE-RELATED MACULAR DEGENERATION
     Route: 042
  2. LUCENTIS [Suspect]
     Active Substance: RANIBIZUMAB
     Indication: AGE-RELATED MACULAR DEGENERATION
     Dosage: RECEIVED 24 TIMES IN TOTAL
     Route: 031
  3. AFLIBERCEPT [Concomitant]
     Active Substance: AFLIBERCEPT
     Indication: PRODUCT USED FOR UNKNOWN INDICATION
     Route: 065
  4. VISUDYNE [Suspect]
     Active Substance: VERTEPORFIN
     Indication: DETACHMENT OF RETINAL PIGMENT EPITHELIUM
     Route: 042
  5. LUCENTIS [Suspect]
     Active Substance: RANIBIZUMAB
     Indication: CHOROIDAL NEOVASCULARISATION
     Route: 031
  6. LUCENTIS [Suspect]
     Active Substance: RANIBIZUMAB
     Indication: DETACHMENT OF RETINAL PIGMENT EPITHELIUM
     Route: 031

REACTIONS (4)
  - Choroidal neovascularisation [Unknown]
  - Visual acuity reduced [Unknown]
  - Therapy non-responder [Unknown]
  - Vitreous haemorrhage [Unknown]
